FAERS Safety Report 14443553 (Version 1)
Quarter: 2018Q1

REPORT INFORMATION
  Report Type: Spontaneous
  Country: US (occurrence: US)
  Receive Date: 20180125
  Receipt Date: 20180125
  Transmission Date: 20180509
  Serious: No
  Sender: FDA-Public Use
  Company Number: None

PATIENT
  Age: 16 Year
  Sex: Male

DRUGS (1)
  1. OMNITROPE [Suspect]
     Active Substance: SOMATROPIN
     Indication: HYPOPITUITARISM
     Route: 058
     Dates: start: 20171010

REACTIONS (4)
  - Headache [None]
  - Abdominal discomfort [None]
  - Decreased appetite [None]
  - Nausea [None]

NARRATIVE: CASE EVENT DATE: 20180116
